FAERS Safety Report 19000474 (Version 1)
Quarter: 2021Q1

REPORT INFORMATION
  Report Type: Other
  Country: FR (occurrence: FR)
  Receive Date: 20210312
  Receipt Date: 20210312
  Transmission Date: 20210420
  Serious: Yes (Death, Other)
  Sender: FDA-Public Use
  Company Number: FR-ASTELLAS-2021US008329

PATIENT
  Age: 61 Year
  Sex: Male

DRUGS (3)
  1. COVERAM [Interacting]
     Active Substance: AMLODIPINE\PERINDOPRIL
     Indication: HYPERTENSION
     Dosage: 1 DF, TOTAL DOSE (5 MG/5 MG)
     Route: 048
     Dates: start: 20210224, end: 20210224
  2. ADVAGRAF [Suspect]
     Active Substance: TACROLIMUS
     Indication: RENAL TRANSPLANT
     Route: 048
  3. RAPAMUNE [Interacting]
     Active Substance: SIROLIMUS
     Indication: RENAL TRANSPLANT
     Route: 048

REACTIONS (2)
  - Angioedema [Fatal]
  - Drug interaction [Unknown]

NARRATIVE: CASE EVENT DATE: 20210225
